FAERS Safety Report 8144613-2 (Version None)
Quarter: 2012Q1

REPORT INFORMATION
  Report Type: 
  Country: None (occurrence: None)
  Receive Date: 20120217
  Receipt Date: 20120213
  Transmission Date: 20120608
  Serious: Yes (Other)
  Sender: FDA-Public Use
  Company Number: US-VERTEX PHARMACEUTICALS INC.-AE-2012-002088

PATIENT
  Sex: Female
  Weight: 52.21 kg

DRUGS (7)
  1. AZITHROMYCIN [Concomitant]
  2. EFFEXOR [Concomitant]
  3. IVACAFTOR [Suspect]
     Indication: CYSTIC FIBROSIS
     Route: 048
     Dates: start: 20120209, end: 20120211
  4. PULMOZYME [Concomitant]
  5. CLONOPIN [Concomitant]
  6. VORICONAZOLE [Concomitant]
  7. CEFOXITIN [Concomitant]
     Indication: CYSTIC FIBROSIS

REACTIONS (1)
  - HYPERSENSITIVITY [None]
